FAERS Safety Report 26143985 (Version 1)
Quarter: 2025Q4

REPORT INFORMATION
  Report Type: Report from Study
  Country: JP (occurrence: JP)
  Receive Date: 20251211
  Receipt Date: 20251211
  Transmission Date: 20260117
  Serious: Yes (Other)
  Sender: ROCHE
  Company Number: JP-ROCHE-10000457682

PATIENT
  Age: 10 Year
  Sex: Male

DRUGS (2)
  1. RITUXAN [Suspect]
     Active Substance: RITUXIMAB
     Indication: Immune tolerance induction
     Route: 041
  2. BASILIXIMAB [Concomitant]
     Active Substance: BASILIXIMAB

REACTIONS (1)
  - Transplant rejection [Recovered/Resolved]
